FAERS Safety Report 4614563-4 (Version None)
Quarter: 2005Q1

REPORT INFORMATION
  Report Type: 
  Country: None (occurrence: None)
  Receive Date: 20050321
  Receipt Date: 20050124
  Transmission Date: 20050727
  Serious: Yes (Hospitalization)
  Sender: FDA-Public Use
  Company Number: US-MERCK-0501USA03496

PATIENT
  Age: 62 Year
  Sex: Male

DRUGS (6)
  1. BETASERON [Concomitant]
     Route: 065
     Dates: start: 20010201
  2. VIOXX [Suspect]
     Indication: PAIN
     Route: 048
     Dates: start: 20010201, end: 20040210
  3. VIOXX [Suspect]
     Route: 048
     Dates: start: 20040210, end: 20040921
  4. COREG [Concomitant]
     Route: 065
  5. VITAMINS (UNSPECIFIED) [Concomitant]
     Route: 065
  6. BACLOFEN [Concomitant]
     Route: 065

REACTIONS (8)
  - ADVERSE EVENT [None]
  - CORONARY ARTERY DISEASE [None]
  - CORONARY ARTERY OCCLUSION [None]
  - COUGH [None]
  - FAECAL OCCULT BLOOD POSITIVE [None]
  - HYPERTENSIVE CARDIOMYOPATHY [None]
  - PRESCRIBED OVERDOSE [None]
  - PULMONARY CONGESTION [None]
